FAERS Safety Report 10755648 (Version 1)
Quarter: 2015Q1

REPORT INFORMATION
  Report Type: Spontaneous
  Country: US (occurrence: None)
  Receive Date: 20150123
  Receipt Date: 20150123
  Transmission Date: 20150721
  Serious: No
  Sender: FDA-Public Use
  Company Number: 2014TUS010339

PATIENT
  Age: 51 Year
  Sex: Female
  Weight: 49.9 kg

DRUGS (4)
  1. PREDNISONE. [Concomitant]
     Active Substance: PREDNISONE
  2. FLAGYL/00012501/ (METRONIDAZOLE) [Concomitant]
  3. CIPRO/00697201/ (CIPROFLOXACIN) [Concomitant]
  4. ENTYVIO [Suspect]
     Active Substance: VEDOLIZUMAB
     Indication: CROHN^S DISEASE
     Dosage: 300 MG, FIRST DOSE, INTRAVENOUS
     Route: 042
     Dates: start: 20140919, end: 20140919

REACTIONS (3)
  - Condition aggravated [None]
  - Anal fistula [None]
  - Psoriasis [None]

NARRATIVE: CASE EVENT DATE: 20140928
